FAERS Safety Report 4971793-X (Version None)
Quarter: 2006Q2

REPORT INFORMATION
  Report Type: 
  Country: None (occurrence: None)
  Receive Date: 20060413
  Receipt Date: 20060407
  Transmission Date: 20061013
  Serious: Yes (Life-Threatening, Hospitalization)
  Sender: FDA-Public Use
  Company Number: DE-BRACCO-BRO-009955

PATIENT
  Sex: Female

DRUGS (2)
  1. MULTIHANCE [Suspect]
     Route: 042
     Dates: start: 20060331, end: 20060331
  2. MULTIHANCE [Suspect]
     Route: 042
     Dates: start: 20060331, end: 20060331

REACTIONS (6)
  - BRADYCARDIA [None]
  - EYELID OEDEMA [None]
  - GENERALISED ERYTHEMA [None]
  - HEADACHE [None]
  - HYPOTENSION [None]
  - PRURITUS [None]
